FAERS Safety Report 13185295 (Version 1)
Quarter: 2017Q1

REPORT INFORMATION
  Report Type: Report from Study
  Country: None (occurrence: CO)
  Receive Date: 20170203
  Receipt Date: 20170203
  Transmission Date: 20170428
  Serious: Yes (Death)
  Sender: FDA-Public Use
  Company Number: CO-ABBVIE-17P-036-1860481-00

PATIENT
  Age: 71 Year
  Sex: Female
  Weight: 56 kg

DRUGS (1)
  1. ZEMPLAR [Suspect]
     Active Substance: PARICALCITOL
     Indication: HYPERPARATHYROIDISM SECONDARY
     Route: 048
     Dates: start: 20150831, end: 20161206

REACTIONS (7)
  - Diabetic coma [Fatal]
  - Mesenteric vein thrombosis [Fatal]
  - Abdominal pain [Fatal]
  - Blood glucose decreased [Fatal]
  - Cardio-respiratory arrest [Fatal]
  - Hypertension [Fatal]
  - Multiple organ dysfunction syndrome [Fatal]

NARRATIVE: CASE EVENT DATE: 20161209
